FAERS Safety Report 7237715-6 (Version None)
Quarter: 2011Q1

REPORT INFORMATION
  Report Type: 
  Country: None (occurrence: None)
  Receive Date: 20110121
  Receipt Date: 20110114
  Transmission Date: 20110831
  Serious: Yes (Death)
  Sender: FDA-Public Use
  Company Number: PHHY2011DE04153

PATIENT
  Sex: Female
  Weight: 88 kg

DRUGS (4)
  1. ALISKIREN [Suspect]
     Indication: HYPERTENSION
     Dosage: UNK
     Route: 048
     Dates: start: 20081010
  2. ACE INHIBITOR NOS [Concomitant]
  3. BETA BLOCKING AGENTS [Concomitant]
  4. ORAL ANTIDIABETICS [Concomitant]
     Indication: DIABETES MELLITUS

REACTIONS (1)
  - NEOPLASM [None]
